FAERS Safety Report 7644218-3 (Version None)
Quarter: 2011Q3

REPORT INFORMATION
  Report Type: 
  Country: None (occurrence: None)
  Receive Date: 20110729
  Receipt Date: 20110721
  Transmission Date: 20111222
  Serious: Yes (Other)
  Sender: FDA-Public Use
  Company Number: US-BAYER-2011-005005

PATIENT
  Age: 37 Year
  Sex: Female
  Weight: 62.132 kg

DRUGS (4)
  1. DROSPIRENONE AND ETHINYL ESTRADIOL [Suspect]
     Indication: CONTRACEPTION
     Dosage: 1 DF, QD
     Route: 048
     Dates: start: 20081201, end: 20090801
  2. MULTI-VITAMINS [Concomitant]
     Dosage: UNK UNK, QD
  3. VITAMIN D [Concomitant]
  4. RANITIDINE HYDROCHLORIDE [Concomitant]
     Dosage: 150 MG, UNK

REACTIONS (5)
  - GALLBLADDER DISORDER [None]
  - INJURY [None]
  - CHOLECYSTITIS CHRONIC [None]
  - PAIN [None]
  - EMOTIONAL DISTRESS [None]
